FAERS Safety Report 5792053-3 (Version None)
Quarter: 2008Q2

REPORT INFORMATION
  Report Type: 
  Country: None (occurrence: None)
  Receive Date: 20080626
  Receipt Date: 20080620
  Transmission Date: 20081010
  Serious: Yes (Other)
  Sender: FDA-Public Use
  Company Number: PHHY2008JP10602

PATIENT

DRUGS (2)
  1. CYCLOSPORINE [Suspect]
     Indication: NEPHROTIC SYNDROME
  2. PREDNISOLONE [Suspect]
     Indication: NEPHROTIC SYNDROME

REACTIONS (6)
  - CELLULITIS [None]
  - GLAUCOMA [None]
  - GLAUCOMA SURGERY [None]
  - HYPERTENSION [None]
  - SURGERY [None]
  - TREMOR [None]
